FAERS Safety Report 15857066 (Version 1)
Quarter: 2019Q1

REPORT INFORMATION
  Report Type: Spontaneous
  Country: JM (occurrence: JM)
  Receive Date: 20190123
  Receipt Date: 20190123
  Transmission Date: 20190417
  Serious: Yes (Other)
  Sender: FDA-Public Use
  Company Number: PHHY2019JM012481

PATIENT
  Age: 49 Year
  Sex: Male

DRUGS (3)
  1. VYMADA [Suspect]
     Active Substance: SACUBITRIL\VALSARTAN
     Dosage: 100 MG, UNK
     Route: 065
  2. VYMADA [Suspect]
     Active Substance: SACUBITRIL\VALSARTAN
     Dosage: 200 MG, UNK
     Route: 065
  3. VYMADA [Suspect]
     Active Substance: SACUBITRIL\VALSARTAN
     Indication: PRODUCT USED FOR UNKNOWN INDICATION
     Dosage: 50 MG, UNK
     Route: 065

REACTIONS (1)
  - Urinary retention [Unknown]
